FAERS Safety Report 18646505 (Version 4)
Quarter: 2021Q1

REPORT INFORMATION
  Report Type: Spontaneous
  Country: US (occurrence: US)
  Receive Date: 20201221
  Receipt Date: 20210121
  Transmission Date: 20210419
  Serious: Yes (Hospitalization)
  Sender: FDA-Public Use
  Company Number: US-ACORDA-ACO_166416_2020

PATIENT
  Age: 72 Year
  Sex: Male

DRUGS (10)
  1. INBRIJA [Suspect]
     Active Substance: LEVODOPA
     Indication: ON AND OFF PHENOMENON
     Dosage: 2 DOSAGE FORM, PRN
     Dates: end: 20201201
  2. PRAMIPEXOLE. [Concomitant]
     Active Substance: PRAMIPEXOLE
     Indication: PRODUCT USED FOR UNKNOWN INDICATION
     Dosage: ER: 0.375 MILLIGRAM AT 8PM
     Route: 065
  3. INBRIJA [Suspect]
     Active Substance: LEVODOPA
     Indication: PARKINSON^S DISEASE
     Dosage: 2 DOSAGE FORM (84 MG), PRN, NOT TO EXCEED 5 DOSES A DAY
     Dates: start: 20201002, end: 20201023
  4. CARBIDOPA/LEVODOPA [Suspect]
     Active Substance: CARBIDOPA\LEVODOPA
     Indication: PRODUCT USED FOR UNKNOWN INDICATION
     Dosage: 25/200 MG AND 25/250 MG: 1 PILL OF EACH Q3 HOURS
     Route: 065
  5. CARBIDOPA/LEVODOPA [Suspect]
     Active Substance: CARBIDOPA\LEVODOPA
     Dosage: 25/100 MG, 1 PILL @6 AM, 9:30 AM, 12:30 PM AND 4:30 PM
     Route: 065
  6. CARBIDOPA/LEVODOPA [Suspect]
     Active Substance: CARBIDOPA\LEVODOPA
     Dosage: 25/100 MG 1 PILL @ 2 PM, 6 PM AND 10 PM
     Route: 065
  7. RASAGILINE. [Concomitant]
     Active Substance: RASAGILINE
     Indication: PRODUCT USED FOR UNKNOWN INDICATION
     Dosage: 1 MG: 1 PILL IN AM (1X/ DAY)
     Route: 065
  8. RASAGILINE. [Concomitant]
     Active Substance: RASAGILINE
     Dosage: 12 MILLIGRAM, QD
     Route: 065
  9. CARBIDOPA/LEVODOPA [Suspect]
     Active Substance: CARBIDOPA\LEVODOPA
     Dosage: 50/200 MG: 1 PILL AT BEDTIME AND PRN IN THE MIDDLE OF THE NIGHT
  10. CARBIDOPA/LEVODOPA [Suspect]
     Active Substance: CARBIDOPA\LEVODOPA
     Dosage: 25/250MG @ 6AM, 9:30AM, 12:30PM, 4:30PM
     Route: 065

REACTIONS (12)
  - Condition aggravated [Recovering/Resolving]
  - Nasal congestion [Recovered/Resolved]
  - Device difficult to use [Unknown]
  - Chest discomfort [Unknown]
  - Adverse event [Unknown]
  - Saliva discolouration [Unknown]
  - Chest pain [Unknown]
  - Nightmare [Recovered/Resolved]
  - On and off phenomenon [Recovering/Resolving]
  - Dyspnoea [Not Recovered/Not Resolved]
  - Therapeutic product effect variable [Unknown]
  - Drug ineffective [Unknown]

NARRATIVE: CASE EVENT DATE: 20201002
